FAERS Safety Report 11371736 (Version 1)
Quarter: 2015Q3

REPORT INFORMATION
  Report Type: Spontaneous
  Country: US (occurrence: US)
  Receive Date: 20150812
  Receipt Date: 20150812
  Transmission Date: 20151125
  Serious: Yes (Other)
  Sender: FDA-Public Use
  Company Number: US-MYLANLABS-2015M1025973

PATIENT

DRUGS (2)
  1. XULANE [Suspect]
     Active Substance: ETHINYL ESTRADIOL\NORELGESTROMIN
     Indication: PREMENSTRUAL DYSPHORIC DISORDER
     Dosage: 150/35 ?G, CONTINUOUSLY
     Route: 062
     Dates: start: 2015, end: 201507
  2. XULANE [Suspect]
     Active Substance: ETHINYL ESTRADIOL\NORELGESTROMIN
     Indication: CONTRACEPTION

REACTIONS (3)
  - Oligomenorrhoea [Recovered/Resolved]
  - Suicidal ideation [Recovered/Resolved]
  - Premenstrual dysphoric disorder [Recovered/Resolved]

NARRATIVE: CASE EVENT DATE: 2015
